FAERS Safety Report 20754484 (Version 1)
Quarter: 2022Q2

REPORT INFORMATION
  Report Type: Spontaneous
  Country: US (occurrence: None)
  Receive Date: 20220426
  Receipt Date: 20220426
  Transmission Date: 20220721
  Serious: No
  Sender: FDA-Public Use
  Company Number: US-ROCHE-2880271

PATIENT
  Sex: Female

DRUGS (1)
  1. ESBRIET [Suspect]
     Active Substance: PIRFENIDONE
     Indication: Pulmonary arterial hypertension
     Route: 065

REACTIONS (5)
  - Intentional product use issue [Unknown]
  - Nausea [Unknown]
  - Fatigue [Unknown]
  - Muscular weakness [Unknown]
  - Decreased appetite [Unknown]
